FAERS Safety Report 4775062-2 (Version None)
Quarter: 2005Q3

REPORT INFORMATION
  Report Type: 
  Country: None (occurrence: None)
  Receive Date: 20050920
  Receipt Date: 20050908
  Transmission Date: 20060218
  Serious: Yes (Hospitalization)
  Sender: FDA-Public Use
  Company Number: 2005126162

PATIENT
  Sex: Female

DRUGS (3)
  1. DETROL LA [Suspect]
     Indication: BLADDER PAIN
     Dosage: 4 MG (4 MG, 1 IN 1 D), ORAL
     Route: 048
     Dates: start: 20050902, end: 20050907
  2. CHLORTALIDONE (CHLORTALIDONE) [Concomitant]
  3. ENALAPRIL MALEATE [Concomitant]

REACTIONS (4)
  - HYPOTENSION [None]
  - PETIT MAL EPILEPSY [None]
  - SPEECH DISORDER [None]
  - VOMITING [None]
